FAERS Safety Report 19732028 (Version 2)
Quarter: 2021Q3

REPORT INFORMATION
  Report Type: Report from Study
  Country: US (occurrence: US)
  Receive Date: 20210820
  Receipt Date: 20210927
  Transmission Date: 20211014
  Serious: Yes (Disabling, Other)
  Sender: FDA-Public Use
  Company Number: US-JAZZ-2021-US-015135

PATIENT
  Age: 59 Year
  Sex: Female

DRUGS (5)
  1. XYREM [Suspect]
     Active Substance: SODIUM OXYBATE
     Dosage: DOSE ADJUSTMENTS
     Route: 048
     Dates: start: 200808, end: 201901
  2. XYREM [Suspect]
     Active Substance: SODIUM OXYBATE
     Indication: NARCOLEPSY
     Dosage: 2.25 GRAM, BID
     Route: 048
     Dates: start: 200305, end: 200306
  3. XYREM [Suspect]
     Active Substance: SODIUM OXYBATE
     Indication: CATAPLEXY
     Dosage: 3 GRAM, BID
     Route: 048
     Dates: start: 200306, end: 200310
  4. XYREM [Suspect]
     Active Substance: SODIUM OXYBATE
     Dosage: 2.25 GRAM, BID
     Route: 048
     Dates: start: 201901
  5. XYREM [Suspect]
     Active Substance: SODIUM OXYBATE
     Dosage: 2.25 GRAM, BID
     Route: 048
     Dates: start: 200404, end: 200808

REACTIONS (14)
  - Seasonal allergy [Unknown]
  - Oedema peripheral [Unknown]
  - Seizure [Unknown]
  - Essential hypertension [Unknown]
  - Sciatica [Unknown]
  - Lymphoedema [Unknown]
  - Lipoedema [Not Recovered/Not Resolved]
  - Intervertebral disc protrusion [Unknown]
  - Skin ulcer [Unknown]
  - Obesity [Unknown]
  - Decreased activity [Unknown]
  - Type V hyperlipidaemia [Unknown]
  - Varicose vein [Unknown]
  - Sleep apnoea syndrome [Unknown]

NARRATIVE: CASE EVENT DATE: 202109
